FAERS Safety Report 16846845 (Version 1)
Quarter: 2019Q3

REPORT INFORMATION
  Report Type: Spontaneous
  Country: US (occurrence: US)
  Receive Date: 20190924
  Receipt Date: 20190924
  Transmission Date: 20191005
  Serious: Yes (Other)
  Sender: FDA-Public Use
  Company Number: US-GLAXOSMITHKLINE-US2019168994

PATIENT
  Sex: Male

DRUGS (1)
  1. TUMS [Suspect]
     Active Substance: CALCIUM CARBONATE
     Indication: ABDOMINAL DISCOMFORT
     Dosage: 1 DF, UNK

REACTIONS (5)
  - Urticaria [Unknown]
  - Drug hypersensitivity [Unknown]
  - Oral pruritus [Unknown]
  - Anaphylactoid reaction [Recovering/Resolving]
  - Product use in unapproved indication [Unknown]
